FAERS Safety Report 9661222 (Version 1)
Quarter: 2013Q4

REPORT INFORMATION
  Report Type: Spontaneous
  Country: US (occurrence: US)
  Receive Date: 20131031
  Receipt Date: 20131031
  Transmission Date: 20140711
  Serious: Yes (Other)
  Sender: FDA-Public Use
  Company Number: US-SA-2013SA110553

PATIENT
  Age: 83 Year
  Sex: Female

DRUGS (1)
  1. CEREZYME [Suspect]
     Indication: GAUCHER^S DISEASE
     Dosage: DOSE:2000 UNIT(S)
     Route: 042
     Dates: start: 19990731

REACTIONS (3)
  - Spinal compression fracture [Unknown]
  - Pain [Unknown]
  - Fall [Unknown]
